FAERS Safety Report 8450189-2 (Version None)
Quarter: 2012Q2

REPORT INFORMATION
  Report Type: 
  Country: None (occurrence: None)
  Receive Date: 20120614
  Receipt Date: 20120614
  Transmission Date: 20120825
  Serious: Yes (Disabling)
  Sender: FDA-Public Use
  Company Number: None

PATIENT
  Sex: Male
  Weight: 80.7403 kg

DRUGS (2)
  1. STAXYN [Suspect]
     Dosage: 10 MG AS NEEDED SL
     Route: 060
     Dates: start: 20120512, end: 20120512
  2. STAXYN [Suspect]
     Dosage: 10 MG AS NEEDED SL
     Route: 060
     Dates: start: 20120514, end: 20120514

REACTIONS (2)
  - DEAFNESS UNILATERAL [None]
  - TINNITUS [None]
